FAERS Safety Report 5023915-2 (Version None)
Quarter: 2006Q2

REPORT INFORMATION
  Report Type: 
  Country: None (occurrence: None)
  Receive Date: 20060612
  Receipt Date: 20060530
  Transmission Date: 20061013
  Serious: Yes (Hospitalization)
  Sender: FDA-Public Use
  Company Number: AT-BOEHRINGER INGELHEIM PHARMACEUTICALS, INC.-2006-BE-00052BE

PATIENT
  Sex: Male
  Weight: 61 kg

DRUGS (5)
  1. TIPRANAVIR + RITONAVIR CO-ADMIN [Suspect]
     Indication: HIV INFECTION
     Dosage: TPV: 250MG RTV: 100MG  DAILY DOSE: TPV/RTV: 1000MG/400MG
     Route: 048
     Dates: start: 20030806
  2. ABACAVIR [Suspect]
     Indication: HIV INFECTION
     Route: 048
     Dates: start: 20030806
  3. STAVUDINE [Suspect]
     Indication: HIV INFECTION
     Route: 048
     Dates: start: 20030806
  4. TENOFOVIR [Suspect]
     Indication: HIV INFECTION
     Route: 048
     Dates: start: 20030806
  5. ENFUVIRTIDE [Suspect]
     Indication: HIV INFECTION
     Dates: start: 20030806

REACTIONS (2)
  - HAEMATURIA [None]
  - PROTEINURIA [None]
